FAERS Safety Report 6111398-0 (Version None)
Quarter: 2009Q1

REPORT INFORMATION
  Report Type: 
  Country: None (occurrence: None)
  Receive Date: 20090310
  Receipt Date: 20090310
  Transmission Date: 20090719
  Serious: Yes (Other)
  Sender: FDA-Public Use
  Company Number: None

PATIENT
  Age: 48 Year
  Sex: Male

DRUGS (9)
  1. CARBAMAZEPINE [Suspect]
     Indication: SCHIZOAFFECTIVE DISORDER
     Dosage: 400MG BID PO
     Route: 048
     Dates: start: 20090226, end: 20090228
  2. METOPROLOL TARTRATE [Concomitant]
  3. FLUPHENAZINE [Concomitant]
  4. COGENTIN [Concomitant]
  5. ENALAPRIL [Concomitant]
  6. SYNTHROID [Concomitant]
  7. ATIVAN [Concomitant]
  8. MRI [Concomitant]
  9. FISH OIL [Concomitant]

REACTIONS (2)
  - BLOOD SODIUM DECREASED [None]
  - POLYDIPSIA [None]
